FAERS Safety Report 17986015 (Version 2)
Quarter: 2020Q3

REPORT INFORMATION
  Report Type: Spontaneous
  Country: JP (occurrence: JP)
  Receive Date: 20200707
  Receipt Date: 20200728
  Transmission Date: 20201103
  Serious: Yes (Hospitalization)
  Sender: FDA-Public Use
  Company Number: JP-AMGEN-JPNSP2020104977

PATIENT
  Age: 84 Year
  Sex: Female
  Weight: 44.1 kg

DRUGS (15)
  1. NESP [Concomitant]
     Active Substance: DARBEPOETIN ALFA
     Dosage: 60 MICROGRAM, QWK
     Route: 065
     Dates: start: 20190610, end: 20190805
  2. NESP [Concomitant]
     Active Substance: DARBEPOETIN ALFA
     Dosage: 70 MICROGRAM, QWK
     Route: 065
     Dates: start: 20191028, end: 20200212
  3. NESP [Concomitant]
     Active Substance: DARBEPOETIN ALFA
     Dosage: 30 MILLIGRAM, QWK
     Route: 065
     Dates: start: 20191018, end: 20191025
  4. OXAROL [Concomitant]
     Active Substance: MAXACALCITOL
     Dosage: 5 MICROGRAM, 3 TIMES/WK
     Route: 065
     Dates: start: 20190201, end: 20190703
  5. NESP [Concomitant]
     Active Substance: DARBEPOETIN ALFA
     Dosage: 20 MILLIGRAM, QWK
     Route: 065
     Dates: start: 20190819, end: 20191014
  6. MAXACALCITOL [Concomitant]
     Active Substance: MAXACALCITOL
     Dosage: 2.5 MICROGRAM, 2 TIMES/WK
     Route: 042
     Dates: start: 20190712, end: 20200420
  7. PARSABIV [Suspect]
     Active Substance: ETELCALCETIDE HYDROCHLORIDE
     Indication: HYPERPARATHYROIDISM SECONDARY
     Dosage: 5 MILLIGRAM, 3 TIMES/WK
     Route: 010
     Dates: start: 20190315, end: 20190403
  8. MAXACALCITOL [Concomitant]
     Active Substance: MAXACALCITOL
     Dosage: 5 MICROGRAM, 2 TIMES/WK
     Route: 042
     Dates: start: 20190705, end: 20190710
  9. PARSABIV [Suspect]
     Active Substance: ETELCALCETIDE HYDROCHLORIDE
     Dosage: 2.5 MILLIGRAM, 3 TIMES/WK
     Route: 010
     Dates: start: 20190405, end: 20190422
  10. NESP [Concomitant]
     Active Substance: DARBEPOETIN ALFA
     Dosage: 120 MICROGRAM, QWK
     Route: 065
     Dates: end: 20190603
  11. NESP [Concomitant]
     Active Substance: DARBEPOETIN ALFA
     Dosage: 100 MICROGRAM, QWK
     Route: 065
     Dates: start: 20200214, end: 20200306
  12. NESP [Concomitant]
     Active Substance: DARBEPOETIN ALFA
     Dosage: 120 MICROGRAM, QWK
     Route: 065
     Dates: start: 20200313, end: 20200417
  13. FESIN [SACCHARATED IRON OXIDE] [Concomitant]
     Active Substance: IRON SUCROSE
     Dosage: 40 MILLIGRAM, QD
     Route: 065
     Dates: end: 20190529
  14. OXAROL [Concomitant]
     Active Substance: MAXACALCITOL
     Dosage: 5 MICROGRAM, 3 TIMES/WK
     Route: 065
     Dates: start: 20190201, end: 20190703
  15. DENOTAS [Concomitant]
     Active Substance: CALCIUM CARBONATE\CHOLECALCIFEROL\MAGNESIUM CARBONATE
     Dosage: 2 DOSAGE FORM, QD
     Route: 048

REACTIONS (2)
  - Peripheral circulatory failure [Not Recovered/Not Resolved]
  - Hand fracture [Recovered/Resolved]

NARRATIVE: CASE EVENT DATE: 20190925
